FAERS Safety Report 4538584-5 (Version None)
Quarter: 2004Q4

REPORT INFORMATION
  Report Type: 
  Country: None (occurrence: None)
  Receive Date: 20041222
  Receipt Date: 20041206
  Transmission Date: 20050328
  Serious: Yes (Life-Threatening, Hospitalization)
  Sender: FDA-Public Use
  Company Number: A01200406210

PATIENT
  Age: 77 Year
  Sex: Male

DRUGS (3)
  1. CLOPIDOGREL  - TABLET - 75 MG [Suspect]
     Indication: ANGIOPATHY
     Dosage: 75 MG QD ORAL
     Route: 048
     Dates: start: 20040606, end: 20040623
  2. DOXAZOSIN [Concomitant]
  3. BENDROFLUAZIDE [Concomitant]

REACTIONS (2)
  - CHOLECYSTITIS ACUTE [None]
  - CHOLESTASIS [None]
